FAERS Safety Report 8861294 (Version 2)
Quarter: 2012Q4

REPORT INFORMATION
  Report Type: 
  Country: US (occurrence: US)
  Receive Date: 20121026
  Receipt Date: 20121127
  Transmission Date: 20130627
  Serious: Yes (Death, Hospitalization, Other)
  Sender: FDA-Public Use
  Company Number: US-BAYER-2012-111935

PATIENT
  Age: 51 Year
  Sex: Female
  Weight: 71.66 kg

DRUGS (36)
  1. BETASERON [Suspect]
     Indication: MULTIPLE SCLEROSIS
     Dosage: UNK
     Dates: start: 20081111
  2. PRILOSEC [Concomitant]
     Dosage: 20mg
     Route: 048
  3. PREMARIN [Concomitant]
     Dosage: 1.25mg
  4. LYRICA [Concomitant]
     Dosage: 150mg
     Route: 048
  5. FLONASE [Concomitant]
     Dosage: 2 sprays each nostril
  6. VALIUM [Concomitant]
     Dosage: 5mg, qid, prn
     Route: 048
  7. CENTRUM SILVER [Concomitant]
     Dosage: 1 DF, QD
     Route: 048
  8. LIORESAL [Concomitant]
     Dosage: 20mg
     Route: 048
  9. ZOLOFT [Concomitant]
     Dosage: 100mg
     Route: 048
  10. COREG [Concomitant]
     Dosage: 6.25mg
     Route: 048
  11. ASPIRIN [Concomitant]
     Dosage: 81mg
     Route: 048
  12. VITAMIN C [Concomitant]
     Dosage: 500mg
     Route: 048
  13. LIPITOR [Concomitant]
     Dosage: 20mg q. nightly
     Route: 048
  14. CALTRATE PLUS [Concomitant]
     Dosage: 100mg
     Route: 048
  15. COENZYME Q10 [Concomitant]
     Dosage: 100mg
     Route: 048
  16. CRANBERRY [Concomitant]
     Dosage: 500mg
     Route: 048
  17. RITALIN SR [Concomitant]
     Dosage: 20mg QD, at 7a.m.
     Route: 048
  18. PYCNOGENOL [Concomitant]
     Dosage: 50mg
     Route: 048
  19. ROYAL JELLY [Concomitant]
     Dosage: 1 DF, QD
  20. VITAMIN B12 [Concomitant]
     Dosage: unknown dose
     Route: 048
  21. HYDROCODONE [Concomitant]
     Indication: PAIN
     Dosage: 10/500 two tid prn
     Route: 048
  22. OMEGA 3 FATTY ACIDS [Concomitant]
     Dosage: 500mg
     Route: 048
  23. LUPIN [Concomitant]
     Dosage: 10mg
     Route: 048
  24. MS CONTIN [Concomitant]
     Dosage: 45mg
  25. ZOFRAN [Concomitant]
     Dosage: UNK UNK, PRN
  26. TYLENOL [Concomitant]
     Dosage: UNK UNK, PRN
  27. XOPENEX [Concomitant]
     Dosage: UNK UNK, PRN
  28. VANCOMYCIN [Concomitant]
     Dosage: 1.25g
     Route: 042
  29. MERREM [Concomitant]
     Dosage: 500mg
     Route: 042
  30. MIRALAX [Concomitant]
  31. SENOKOT [Concomitant]
  32. PROTONIX [Concomitant]
     Dosage: 40mg
  33. LOVENOX [Concomitant]
     Dosage: 80mg q 12 hours
  34. OSCAL [Concomitant]
     Dosage: UNK UNK, BID
  35. PERCOCET [Concomitant]
     Dosage: 7.5/325
  36. COUMADIN [Concomitant]

REACTIONS (11)
  - Pain in extremity [None]
  - Muscle spasms [None]
  - Nausea [Recovered/Resolved]
  - Vomiting [Recovered/Resolved]
  - Lung adenocarcinoma metastatic [None]
  - Lymphadenopathy [None]
  - Deep vein thrombosis [None]
  - Cerebrovascular accident [None]
  - Hemiparesis [None]
  - Somnolence [None]
  - Death [Fatal]
